FAERS Safety Report 10082022 (Version 3)
Quarter: 2014Q2

REPORT INFORMATION
  Report Type: Spontaneous
  Country: US (occurrence: None)
  Receive Date: 20140414
  Receipt Date: 20140425
  Transmission Date: 20141212
  Serious: Yes (Other)
  Sender: FDA-Public Use
  Company Number: UTC-046900

PATIENT
  Age: 79 Year
  Sex: Female
  Weight: 83.91 kg

DRUGS (3)
  1. REMODULIN [Suspect]
     Indication: PULMONARY ARTERIAL HYPERTENSION
     Dosage: 2.88 UG/KG (0.002 UG/KG, 1 IN 1 MIN)
     Route: 058
     Dates: start: 20140318
  2. LETAIRIS (AMBRISENTAN) (UNKNOWN) [Concomitant]
  3. WARFARIN [Concomitant]

REACTIONS (14)
  - Oxygen saturation decreased [None]
  - Dyspnoea [None]
  - Suffocation feeling [None]
  - Dizziness [None]
  - Feeling abnormal [None]
  - Asthenia [None]
  - Hypoxia [None]
  - Palpitations [None]
  - Quality of life decreased [None]
  - Mobility decreased [None]
  - Fatigue [None]
  - Oedema peripheral [None]
  - Alopecia [None]
  - Presyncope [None]
